FAERS Safety Report 7736833-3 (Version None)
Quarter: 2011Q3

REPORT INFORMATION
  Report Type: 
  Country: None (occurrence: None)
  Receive Date: 20110908
  Receipt Date: 20110908
  Transmission Date: 20111222
  Serious: No
  Sender: FDA-Public Use
  Company Number: None

PATIENT
  Age: 32 Year
  Sex: Female
  Weight: 58.967 kg

DRUGS (1)
  1. TOPAMAX -GENERIC- [Suspect]
     Indication: MIGRAINE
     Dates: start: 20110201, end: 20110908

REACTIONS (2)
  - DEPRESSION [None]
  - ALOPECIA [None]
